FAERS Safety Report 15860174 (Version 2)
Quarter: 2019Q2

REPORT INFORMATION
  Report Type: Spontaneous
  Country: US (occurrence: US)
  Receive Date: 20190123
  Receipt Date: 20190402
  Transmission Date: 20190711
  Serious: Yes (Death, Other)
  Sender: FDA-Public Use
  Company Number: US-OTSUKA-2019_001690

PATIENT
  Sex: Female
  Weight: 53.06 kg

DRUGS (15)
  1. REGULOID [Concomitant]
     Active Substance: PSYLLIUM HUSK
     Indication: CONSTIPATION
     Dosage: UNK, (DISSOLVE 1 TSP IN 8 OZ FLUID AND TAKE 1 GM (8AM, 5PM), BID
     Route: 048
     Dates: start: 20170523
  2. SENEXON-S [Concomitant]
     Active Substance: DOCUSATE SODIUM\SENNOSIDES A AND B
     Indication: MOOD ALTERED
     Dosage: 1 DF, QD (EVERY MORNING, 8 AM)
     Route: 048
     Dates: start: 20180226
  3. ACETAMINOPHEN. [Concomitant]
     Active Substance: ACETAMINOPHEN
     Indication: PAIN
     Dosage: 2 DF, QID AS NEEDED
     Route: 048
     Dates: start: 20150605
  4. SENEXON-S [Concomitant]
     Active Substance: DOCUSATE SODIUM\SENNOSIDES A AND B
     Dosage: 2 DF, QD (IN EVENING, 5 PM)
     Route: 048
     Dates: start: 20180226
  5. QUETIAPINE FUMARATE. [Concomitant]
     Active Substance: QUETIAPINE FUMARATE
     Indication: DEPRESSION
     Dosage: 1 DF, QD (8 PM)
     Route: 048
     Dates: start: 20160620
  6. NUEDEXTA [Suspect]
     Active Substance: DEXTROMETHORPHAN HYDROBROMIDE\QUINIDINE SULFATE
     Indication: AFFECT LABILITY
     Dosage: 1 DF, BID [EVERY 12 HRS]
     Route: 048
     Dates: start: 20170326
  7. BENZTROPINE MESILATE [Concomitant]
     Active Substance: BENZTROPINE MESYLATE
     Indication: TREMOR
     Dosage: 1 DF, TID (8 AM, 2 PM, 8PM)
     Route: 048
     Dates: start: 20180214
  8. AMLODIPINE BESYLATE. [Concomitant]
     Active Substance: AMLODIPINE BESYLATE
     Indication: HYPERTENSION
     Dosage: 1 DF, QD (8 AM)
     Route: 048
     Dates: start: 20161127
  9. ONDANSETRON HCL [Concomitant]
     Active Substance: ONDANSETRON HYDROCHLORIDE
     Indication: VOMITING
  10. VITAMIN D3 [Concomitant]
     Active Substance: CHOLECALCIFEROL
     Indication: VITAMIN D DEFICIENCY
     Dosage: 1 DF, QD (8 AM)
     Route: 048
     Dates: start: 20170410
  11. DONEPEZIL. [Concomitant]
     Active Substance: DONEPEZIL
     Indication: DEMENTIA
     Dosage: 2 DF, QD (AT BEDTIME, 8 PM)
     Route: 048
     Dates: start: 20180104
  12. ONDANSETRON HCL [Concomitant]
     Active Substance: ONDANSETRON HYDROCHLORIDE
     Indication: NAUSEA
     Dosage: 1 DF, TID (EVERY 8 HOURS AS NEEDED)
     Route: 048
     Dates: start: 20180115
  13. ASPIRIN. [Concomitant]
     Active Substance: ASPIRIN
     Indication: ANTICOAGULANT THERAPY
     Dosage: 1 DF, QD (8 AM)
     Route: 048
     Dates: start: 20160918
  14. MUCINEX [Concomitant]
     Active Substance: GUAIFENESIN
     Indication: COUGH
     Dosage: UNK, BID [4 TSP (20ML = 20/400MG) EVERY 12 HRS AS NEEDED, 1 ML]
     Route: 048
     Dates: start: 20170912
  15. ALBUTEROL W/IPRATROPIUM [Concomitant]
     Active Substance: ALBUTEROL\IPRATROPIUM
     Indication: COUGH
     Dosage: 3 ML, QID (INHALE 1 VIAL VIA NEBULIZER EVERY 6 HOURS, AS NEEDED)
     Route: 055
     Dates: start: 20170321

REACTIONS (3)
  - Pneumonia aspiration [Fatal]
  - Therapeutic response unexpected [Unknown]
  - Dysphagia [Unknown]
